FAERS Safety Report 20480682 (Version 1)
Quarter: 2022Q1

REPORT INFORMATION
  Report Type: Report from Study
  Country: CA (occurrence: CA)
  Receive Date: 20220216
  Receipt Date: 20220216
  Transmission Date: 20220423
  Serious: Yes (Other)
  Sender: FDA-Public Use
  Company Number: CA-JNJFOC-20210301121

PATIENT
  Age: 12 Year
  Sex: Male
  Weight: 39 kg

DRUGS (2)
  1. REMICADE [Suspect]
     Active Substance: INFLIXIMAB
     Indication: Crohn^s disease
     Route: 042
     Dates: start: 20200707
  2. REMICADE [Suspect]
     Active Substance: INFLIXIMAB
     Dosage: LAST INFUSION DATE: 09/FEB/2022
     Route: 042

REACTIONS (7)
  - Anal abscess [Recovering/Resolving]
  - Nasal ulcer [Recovering/Resolving]
  - Scab [Unknown]
  - Eczema [Recovered/Resolved]
  - Erythema [Recovered/Resolved]
  - Constipation [Unknown]
  - Anal fistula [Recovering/Resolving]

NARRATIVE: CASE EVENT DATE: 20210101
